FAERS Safety Report 8861255 (Version 1)
Quarter: 2012Q4

REPORT INFORMATION
  Report Type: 
  Country: US (occurrence: US)
  Receive Date: 20121026
  Receipt Date: 20121026
  Transmission Date: 20130627
  Serious: No
  Sender: FDA-Public Use
  Company Number: US-PFIZER INC-2012263826

PATIENT
  Age: 23 Year
  Sex: Male

DRUGS (6)
  1. SOMAVERT [Suspect]
     Dosage: 10 mg, every day
     Route: 058
  2. LEVOTHYROXINE [Concomitant]
     Dosage: 100 ug, UNK
  3. HYDROCORTISONE [Concomitant]
     Dosage: 2%, UNK
  4. MELATONIN [Concomitant]
     Dosage: 1 mg, UNK
  5. TESTOSTERONE [Concomitant]
     Dosage: 100 mg/ml, UNK
  6. RISPERIDONE [Concomitant]
     Dosage: 1 mg, UNK

REACTIONS (2)
  - Abdominal pain upper [Unknown]
  - Abdominal discomfort [Unknown]
